FAERS Safety Report 5725375-2 (Version None)
Quarter: 2008Q2

REPORT INFORMATION
  Report Type: 
  Country: None (occurrence: None)
  Receive Date: 20080501
  Receipt Date: 20080421
  Transmission Date: 20081010
  Serious: Yes (Other)
  Sender: FDA-Public Use
  Company Number: US-PFIZER INC-2007018143

PATIENT
  Sex: Female
  Weight: 61 kg

DRUGS (1)
  1. CELEBREX [Suspect]
     Indication: ARTHRITIS

REACTIONS (7)
  - BLADDER DISORDER [None]
  - CARDIAC FLUTTER [None]
  - GASTRIC DISORDER [None]
  - HEART RATE DECREASED [None]
  - HYPOTENSION [None]
  - MUSCULOSKELETAL PAIN [None]
  - ULCER [None]
